FAERS Safety Report 8489360-2 (Version None)
Quarter: 2012Q3

REPORT INFORMATION
  Report Type: 
  Country: None (occurrence: None)
  Receive Date: 20120705
  Receipt Date: 20120625
  Transmission Date: 20120928
  Serious: Yes (Other)
  Sender: FDA-Public Use
  Company Number: US-ASTRAZENECA-2012SE42664

PATIENT
  Age: 24333 Day
  Sex: Male
  Weight: 85.3 kg

DRUGS (18)
  1. IMDUR [Concomitant]
  2. INSULIN [Concomitant]
  3. SEROQUEL [Suspect]
     Indication: SLEEP DISORDER
     Route: 048
  4. CREON [Concomitant]
  5. LOVASTATINE [Concomitant]
  6. LISINOPRIL [Suspect]
     Route: 048
  7. BETAPACE [Concomitant]
  8. PLAVIX [Concomitant]
  9. DUTOPROL XL [Concomitant]
  10. LOPID [Concomitant]
  11. DIAZEPAM [Concomitant]
  12. NEXIUM [Suspect]
     Indication: GASTROOESOPHAGEAL REFLUX DISEASE
     Route: 048
  13. NEURONTIN [Concomitant]
  14. SYNTHROID [Concomitant]
     Indication: THYROID DISORDER
  15. FLONASE [Concomitant]
  16. HYDROCODONE BITARTRATE [Concomitant]
  17. ASPIRIN [Concomitant]
  18. DIGOXIN [Concomitant]

REACTIONS (3)
  - HAEMORRHAGIC STROKE [None]
  - OFF LABEL USE [None]
  - CEREBROVASCULAR ACCIDENT [None]
